FAERS Safety Report 5782044-0 (Version None)
Quarter: 2008Q2

REPORT INFORMATION
  Report Type: 
  Country: None (occurrence: None)
  Receive Date: 20080623
  Receipt Date: 20080613
  Transmission Date: 20081010
  Serious: Yes (Life-Threatening, Hospitalization)
  Sender: FDA-Public Use
  Company Number: DE-MERCK-0805DEU00072

PATIENT
  Age: 60 Year
  Sex: Male
  Weight: 75 kg

DRUGS (6)
  1. SINGULAIR [Suspect]
     Indication: ASTHMA
     Route: 048
     Dates: start: 20070101
  2. ACETYLCYSTEINE [Concomitant]
     Route: 048
  3. THEOPHYLLINE [Concomitant]
     Route: 065
  4. PREDNISONE [Concomitant]
     Route: 065
  5. BUDESONIDE [Concomitant]
     Route: 065
  6. TIOTROPIUM BROMIDE [Concomitant]
     Route: 065

REACTIONS (7)
  - ANXIETY [None]
  - ASTHMA [None]
  - DRUG INEFFECTIVE [None]
  - DYSPNOEA [None]
  - GASTROCARDIAC SYNDROME [None]
  - PANIC ATTACK [None]
  - SLEEP DISORDER [None]
